FAERS Safety Report 9423264 (Version 1)
Quarter: 2013Q3

REPORT INFORMATION
  Report Type: Report from Study
  Country: US (occurrence: US)
  Receive Date: 20130726
  Receipt Date: 20130726
  Transmission Date: 20140515
  Serious: Yes (Hospitalization)
  Sender: FDA-Public Use
  Company Number: US-009507513-1307USA011503

PATIENT
  Sex: Female

DRUGS (8)
  1. DECADRON [Suspect]
     Dosage: UNK
  2. TRASTUZUMAB [Suspect]
     Indication: BREAST CANCER
     Dosage: 8 MG/KG OVER 90 MINUTES ON DAY 1 CYCLE 1
     Route: 042
     Dates: start: 20130207, end: 20130319
  3. TRASTUZUMAB [Suspect]
     Dosage: 6 MG/KG OVER 30-60 ON DAY1 CYCLE 2-6
     Route: 042
  4. DOCETAXEL [Suspect]
     Indication: BREAST CANCER
     Dosage: 75 MG/M2 OVER 60 MINUTES ON DAY 1 FOR 6 CYCLES
     Route: 042
     Dates: start: 20130207, end: 20130319
  5. CYCLOPHOSPHAMIDE [Suspect]
     Indication: BREAST CANCER
     Dosage: 600 MG/M2 OVER 30 MINUTES ON DAY 1 FOR 6 CYCLES
     Route: 042
     Dates: start: 20130207, end: 20130319
  6. GLIPIZIDE [Suspect]
     Indication: DIABETES MELLITUS
  7. LEVEMIR [Suspect]
     Indication: DIABETES MELLITUS
  8. METFORMIN [Suspect]
     Indication: DIABETES MELLITUS

REACTIONS (1)
  - Hyperglycaemia [Recovered/Resolved]
